FAERS Safety Report 6183758-3 (Version None)
Quarter: 2009Q2

REPORT INFORMATION
  Report Type: 
  Country: None (occurrence: None)
  Receive Date: 20090508
  Receipt Date: 20090113
  Transmission Date: 20091009
  Serious: No
  Sender: FDA-Public Use
  Company Number: A0763426A

PATIENT
  Age: 52 Year
  Sex: Male

DRUGS (2)
  1. ALTABAX [Suspect]
     Indication: INFECTION
     Dosage: 1APP TWICE PER DAY
     Route: 061
     Dates: start: 20090105, end: 20090106
  2. NO CONCURRENT MEDICATION [Concomitant]

REACTIONS (1)
  - APPLICATION SITE IRRITATION [None]
